FAERS Safety Report 5343624-X (Version None)
Quarter: 2007Q2

REPORT INFORMATION
  Report Type: 
  Country: None (occurrence: None)
  Receive Date: 20070416
  Receipt Date: 20070122
  Transmission Date: 20071010
  Serious: No
  Sender: FDA-Public Use
  Company Number: 2007SP000286

PATIENT
  Age: 70 Year
  Sex: Female
  Weight: 92.9874 kg

DRUGS (7)
  1. . [Concomitant]
  2. LUNESTA [Suspect]
     Indication: INSOMNIA
     Dosage: SEE IMAGE
     Route: 048
     Dates: start: 20060601, end: 20060101
  3. LUNESTA [Suspect]
     Indication: INSOMNIA
     Dosage: SEE IMAGE
     Route: 048
     Dates: start: 20060101
  4. ATENOLOL [Concomitant]
  5. LANOXIN [Concomitant]
  6. WARFARIN SODIUM [Concomitant]
  7. BUSPAR [Concomitant]

REACTIONS (2)
  - DYSGEUSIA [None]
  - INSOMNIA [None]
